FAERS Safety Report 25053868 (Version 4)
Quarter: 2025Q3

REPORT INFORMATION
  Report Type: Spontaneous
  Country: US (occurrence: US)
  Receive Date: 20250307
  Receipt Date: 20250820
  Transmission Date: 20251021
  Serious: Yes (Hospitalization, Other)
  Sender: SANOFI AVENTIS
  Company Number: US-SA-2025SA066844

PATIENT
  Age: 70 Year
  Sex: Female
  Weight: 136.27 kg

DRUGS (13)
  1. KEVZARA [Suspect]
     Active Substance: SARILUMAB
     Indication: Polymyalgia rheumatica
     Dosage: 200 MG, QOW
     Route: 058
     Dates: start: 20250130, end: 2025
  2. VITAMINS NOS [Concomitant]
     Active Substance: VITAMINS
     Dosage: UNK UNK, QD
  3. VITAMIN B COMPLEX [Concomitant]
     Active Substance: CYANOCOBALAMIN\DEXPANTHENOL\NIACINAMIDE\PYRIDOXINE HYDROCHLORIDE\RIBOFLAVIN 5^-PHOSPHATE SODIUM\THIA
  4. VITAMIN E [Concomitant]
     Active Substance: .ALPHA.-TOCOPHEROL
  5. VITAMIN D3 [Concomitant]
     Active Substance: CHOLECALCIFEROL
  6. VITAMIN B6 [Concomitant]
     Active Substance: PYRIDOXINE HYDROCHLORIDE
  7. LEVOTHYROXINE SODIUM [Concomitant]
     Active Substance: LEVOTHYROXINE SODIUM
  8. AMLODIPINE BESYLATE [Concomitant]
     Active Substance: AMLODIPINE BESYLATE
  9. PREDNISONE [Concomitant]
     Active Substance: PREDNISONE
  10. SIMVASTATIN [Concomitant]
     Active Substance: SIMVASTATIN
  11. OLMESARTAN MEDOXOMIL [Concomitant]
     Active Substance: OLMESARTAN MEDOXOMIL
  12. HYDROXYCHLOROQUINE SULFATE [Concomitant]
     Active Substance: HYDROXYCHLOROQUINE SULFATE
  13. ATENOLOL [Concomitant]
     Active Substance: ATENOLOL

REACTIONS (7)
  - Pneumonia [Unknown]
  - Nasopharyngitis [Not Recovered/Not Resolved]
  - Cough [Not Recovered/Not Resolved]
  - Fatigue [Unknown]
  - Nasal congestion [Not Recovered/Not Resolved]
  - Urinary tract infection [Recovered/Resolved]
  - Vulvovaginal burning sensation [Recovered/Resolved]

NARRATIVE: CASE EVENT DATE: 20250101
